FAERS Safety Report 8810239 (Version 1)
Quarter: 2012Q4

REPORT INFORMATION
  Report Type: 
  Country: SN (occurrence: SN)
  Receive Date: 20120926
  Receipt Date: 20120926
  Transmission Date: 20130627
  Serious: Yes (Death)
  Sender: FDA-Public Use
  Company Number: PHHY2009SN070907

PATIENT
  Sex: Male

DRUGS (1)
  1. GLIVEC [Suspect]
     Dates: start: 20070201

REACTIONS (3)
  - Thrombocytopenia [Fatal]
  - Haemorrhage [Fatal]
  - Acute leukaemia [Fatal]
